FAERS Safety Report 24937625 (Version 2)
Quarter: 2025Q1

REPORT INFORMATION
  Report Type: Spontaneous
  Country: JP (occurrence: JP)
  Receive Date: 20250206
  Receipt Date: 20250318
  Transmission Date: 20250408
  Serious: No
  Sender: ASTELLAS
  Company Number: JP-ASTELLAS-2025-AER-002553

PATIENT
  Age: 8 Decade
  Sex: Female

DRUGS (1)
  1. XOSPATA [Suspect]
     Active Substance: GILTERITINIB
     Indication: Acute myeloid leukaemia recurrent
     Dosage: CRUSHED, SUSPENDED, AND ADMINISTERED THROUGH GASTROSTOMY
     Route: 048
     Dates: start: 20250109

REACTIONS (2)
  - Wrong technique in product usage process [Unknown]
  - Product use issue [Unknown]

NARRATIVE: CASE EVENT DATE: 20250109
